FAERS Safety Report 16691425 (Version 1)
Quarter: 2019Q3

REPORT INFORMATION
  Report Type: Spontaneous
  Country: US (occurrence: US)
  Receive Date: 20190624
  Receipt Date: 20190624
  Transmission Date: 20191004
  Serious: No
  Sender: FDA-Public Use
  Company Number: None

PATIENT
  Age: 80 Year
  Sex: Male
  Weight: 81.65 kg

DRUGS (12)
  1. FLOMAX [Concomitant]
     Active Substance: TAMSULOSIN HYDROCHLORIDE
  2. PLAVIX [Concomitant]
     Active Substance: CLOPIDOGREL BISULFATE
  3. LASIX [Concomitant]
     Active Substance: FUROSEMIDE
  4. PLAVIX [Concomitant]
     Active Substance: CLOPIDOGREL BISULFATE
  5. BENICAR [Concomitant]
     Active Substance: OLMESARTAN MEDOXOMIL
  6. HYDRALAZINE [Suspect]
     Active Substance: HYDRALAZINE HYDROCHLORIDE
     Indication: HYPERTENSION
     Dosage: ?          QUANTITY:50 MG MILLIGRAM(S);?
     Route: 048
     Dates: start: 20190516, end: 20190519
  7. LEVOTHYROXINE. [Concomitant]
     Active Substance: LEVOTHYROXINE
  8. BYSTOLIC [Concomitant]
     Active Substance: NEBIVOLOL HYDROCHLORIDE
  9. CLONODINE [Concomitant]
     Active Substance: CLONIDINE
  10. ALLOPURINOL. [Concomitant]
     Active Substance: ALLOPURINOL
  11. MULTI-VIT [Concomitant]
     Active Substance: VITAMINS
  12. BABY ASPIRIN [Concomitant]
     Active Substance: ASPIRIN

REACTIONS (10)
  - Dyspnoea [None]
  - Hypotension [None]
  - Decreased appetite [None]
  - Heart rate increased [None]
  - Fatigue [None]
  - Joint swelling [None]
  - Peripheral swelling [None]
  - Swelling [None]
  - Speech disorder [None]
  - Rash [None]

NARRATIVE: CASE EVENT DATE: 20190519
